FAERS Safety Report 14953259 (Version 1)
Quarter: 2018Q2

REPORT INFORMATION
  Report Type: Spontaneous
  Country: US (occurrence: US)
  Receive Date: 20180530
  Receipt Date: 20180530
  Transmission Date: 20180711
  Serious: Yes (Other)
  Sender: FDA-Public Use
  Company Number: US-IMPAX LABORATORIES, INC-2018-IPXL-01823

PATIENT
  Age: 73 Year
  Sex: Female

DRUGS (13)
  1. BACLOFEN. [Suspect]
     Active Substance: BACLOFEN
     Indication: PRODUCT USE IN UNAPPROVED INDICATION
     Dosage: OVERMEDICATION, UNK
     Route: 065
  2. BACLOFEN. [Suspect]
     Active Substance: BACLOFEN
     Dosage: 20 MG, EVERY 8HR
     Route: 065
  3. DIAZEPAM. [Suspect]
     Active Substance: DIAZEPAM
     Dosage: 5 MG, EVERY 8HR
     Route: 065
  4. BACLOFEN. [Suspect]
     Active Substance: BACLOFEN
     Indication: STIFF PERSON SYNDROME
     Dosage: 20 MG, EVERY 8HR
     Route: 065
  5. DIAZEPAM. [Suspect]
     Active Substance: DIAZEPAM
     Dosage: 10 MG, EVERY 8HR
     Route: 065
  6. BACLOFEN. [Suspect]
     Active Substance: BACLOFEN
     Dosage: UNK, VIA CATHETER
     Route: 037
  7. OXYCODONE [Suspect]
     Active Substance: OXYCODONE
     Dosage: 5 MG, EVERY 6HR
     Route: 065
  8. ACETAMINOPHEN. [Suspect]
     Active Substance: ACETAMINOPHEN
     Indication: STIFF PERSON SYNDROME
     Dosage: 650 MG, PRN (EVERY 6 HOUR)
     Route: 065
  9. DIAZEPAM. [Suspect]
     Active Substance: DIAZEPAM
     Indication: STIFF PERSON SYNDROME
     Dosage: 3 MG, PRN (EVERY 8 HOUR)
     Route: 065
  10. HYDROMORPHONE [Suspect]
     Active Substance: HYDROMORPHONE
     Indication: STIFF PERSON SYNDROME
     Dosage: UNK
     Route: 037
  11. TRAZODONE [Concomitant]
     Active Substance: TRAZODONE HYDROCHLORIDE
     Indication: PRODUCT USED FOR UNKNOWN INDICATION
     Dosage: 12.5 MG, AT BEDTIME
     Route: 065
  12. OXYCODONE [Suspect]
     Active Substance: OXYCODONE
     Indication: STIFF PERSON SYNDROME
     Dosage: 5 MG, PRN (EVERY 6 HOUR)
     Route: 065
  13. GABAPENTIN. [Concomitant]
     Active Substance: GABAPENTIN
     Indication: PRODUCT USED FOR UNKNOWN INDICATION
     Dosage: 600 MG, EVERY 8HR
     Route: 065

REACTIONS (5)
  - Aphasia [Unknown]
  - Somnolence [Recovering/Resolving]
  - Mood altered [Recovering/Resolving]
  - Cerebrovascular accident [Unknown]
  - Product use in unapproved indication [Unknown]
